FAERS Safety Report 5413257-5 (Version None)
Quarter: 2007Q3

REPORT INFORMATION
  Report Type: 
  Country: None (occurrence: None)
  Receive Date: 20070814
  Receipt Date: 20061127
  Transmission Date: 20080115
  Serious: No
  Sender: FDA-Public Use
  Company Number: US-KINGPHARMUSA00001-K200601512

PATIENT

DRUGS (4)
  1. DELESTROGEN [Suspect]
     Indication: HORMONE REPLACEMENT THERAPY
     Dosage: UNK, Q3W
     Dates: start: 19960101
  2. SEROQUEL [Concomitant]
     Indication: INSOMNIA
     Dosage: 200 MG, QHS
     Route: 048
  3. VALIUM [Concomitant]
     Indication: ANXIETY
     Dosage: 10 MG, QID
     Route: 048
  4. NORTRIPTYLINE HCL [Concomitant]
     Indication: ANXIETY
     Dosage: 75 MG, BID
     Route: 048

REACTIONS (1)
  - INJECTION SITE INFECTION [None]
